FAERS Safety Report 4310948-4 (Version None)
Quarter: 2004Q1

REPORT INFORMATION
  Report Type: 
  Country: None (occurrence: None)
  Receive Date: 20040302
  Receipt Date: 20040216
  Transmission Date: 20041129
  Serious: Yes (Hospitalization)
  Sender: FDA-Public Use
  Company Number: S04-FRA-00774-01

PATIENT
  Age: 77 Year
  Sex: Male

DRUGS (2)
  1. SEROPRAM (CITALOPRAM HYDROBROMIDE) [Suspect]
     Indication: MAJOR DEPRESSION
  2. SEDATIVE (NEUROLEPTIC (NOS) [Concomitant]

REACTIONS (1)
  - PARKINSONISM [None]
